FAERS Safety Report 8556929-6 (Version None)
Quarter: 2012Q3

REPORT INFORMATION
  Report Type: 
  Country: None (occurrence: None)
  Receive Date: 20120801
  Receipt Date: 20120719
  Transmission Date: 20120928
  Serious: Yes (Other)
  Sender: FDA-Public Use
  Company Number: JP-ROCHE-1082451

PATIENT
  Sex: Female

DRUGS (8)
  1. LASIX [Concomitant]
     Route: 048
  2. CALCIUM CARBONATE [Concomitant]
     Route: 048
  3. MUCOSTA [Concomitant]
     Route: 048
  4. NORVASC [Concomitant]
     Dosage: DIALYSIS DAY
     Route: 048
  5. SINGULAIR [Concomitant]
     Route: 048
  6. SEVELAMER HYDROCHLORIDE [Concomitant]
     Route: 048
  7. NORVASC [Concomitant]
     Dosage: NON DIALYSIS DAY
     Route: 048
  8. MIRCERA [Suspect]
     Indication: NEPHROGENIC ANAEMIA
     Route: 042
     Dates: start: 20120605, end: 20120605

REACTIONS (1)
  - CEREBRAL INFARCTION [None]
